FAERS Safety Report 14952030 (Version 1)
Quarter: 2018Q2

REPORT INFORMATION
  Report Type: Spontaneous
  Country: US (occurrence: US)
  Receive Date: 20180530
  Receipt Date: 20180530
  Transmission Date: 20180711
  Serious: No
  Sender: FDA-Public Use
  Company Number: US-SA-2018SA144369

PATIENT
  Age: 39 Year
  Sex: Female

DRUGS (13)
  1. BACLOFEN. [Concomitant]
     Active Substance: BACLOFEN
  2. MOXIFLOX [Concomitant]
     Active Substance: MOXIFLOXACIN
  3. LISINOPRIL. [Concomitant]
     Active Substance: LISINOPRIL
  4. WELLBUTRIN [Concomitant]
     Active Substance: BUPROPION HYDROCHLORIDE
  5. MURO 128 [Concomitant]
     Active Substance: SODIUM CHLORIDE
  6. PROZAC [Concomitant]
     Active Substance: FLUOXETINE HYDROCHLORIDE
  7. APRI [Concomitant]
     Active Substance: DESOGESTREL\ETHINYL ESTRADIOL
  8. AMANTADIN [AMANTADINE] [Concomitant]
  9. AUBAGIO [Suspect]
     Active Substance: TERIFLUNOMIDE
     Indication: MULTIPLE SCLEROSIS
     Dosage: 14 MG, QD
     Route: 048
  10. VITAMIN D3 [Concomitant]
     Active Substance: CHOLECALCIFEROL
  11. BUSPIRON [BUSPIRONE HYDROCHLORIDE] [Concomitant]
  12. PREDNISOLONE. [Concomitant]
     Active Substance: PREDNISOLONE
  13. KETOROLAC [Concomitant]
     Active Substance: KETOROLAC\KETOROLAC TROMETHAMINE

REACTIONS (1)
  - Dry eye [Unknown]
